FAERS Safety Report 14909667 (Version 2)
Quarter: 2018Q2

REPORT INFORMATION
  Report Type: Report from Study
  Country: PT (occurrence: PT)
  Receive Date: 20180517
  Receipt Date: 20180518
  Transmission Date: 20180711
  Serious: Yes (Other)
  Sender: FDA-Public Use
  Company Number: PT-ROCHE-2118947

PATIENT
  Age: 42 Year
  Sex: Female

DRUGS (12)
  1. TRASTUZUMAB. [Suspect]
     Active Substance: TRASTUZUMAB
     Indication: HER-2 POSITIVE BREAST CANCER
     Dosage: LOADING DOSE
     Route: 042
     Dates: start: 20141023
  2. TRASTUZUMAB. [Suspect]
     Active Substance: TRASTUZUMAB
     Route: 042
     Dates: start: 201410
  3. LAPATINIB [Suspect]
     Active Substance: LAPATINIB
     Route: 065
     Dates: end: 201507
  4. TRASTUZUMAB EMTANSINE [Suspect]
     Active Substance: ADO-TRASTUZUMAB EMTANSINE
     Indication: HER-2 POSITIVE BREAST CANCER
     Route: 042
     Dates: start: 20161201
  5. CAPECITABINE. [Suspect]
     Active Substance: CAPECITABINE
     Indication: HER-2 POSITIVE BREAST CANCER
     Dosage: D1-D14, 21-DAY-CYCLES
     Route: 065
     Dates: end: 2016
  6. ZOLEDRONIC ACID. [Suspect]
     Active Substance: ZOLEDRONIC ACID
     Indication: HER-2 POSITIVE BREAST CANCER
     Route: 065
     Dates: start: 201410
  7. PACLITAXEL. [Suspect]
     Active Substance: PACLITAXEL
     Indication: HER-2 POSITIVE BREAST CANCER
     Dosage: FOR 3 WEEKS OF A 4 WEEK CYCLE
     Route: 065
     Dates: start: 20141023
  8. EXEMESTANE. [Suspect]
     Active Substance: EXEMESTANE
     Indication: HER-2 POSITIVE BREAST CANCER
     Route: 065
     Dates: start: 2016
  9. GOSERELINA [Suspect]
     Active Substance: GOSERELIN
     Indication: HER-2 POSITIVE BREAST CANCER
     Route: 065
     Dates: start: 2016
  10. LAPATINIB [Suspect]
     Active Substance: LAPATINIB
     Indication: HER-2 POSITIVE BREAST CANCER
     Route: 065
     Dates: start: 20141023
  11. TAMOXIFEN [Suspect]
     Active Substance: TAMOXIFEN
     Indication: HER-2 POSITIVE BREAST CANCER
     Route: 065
     Dates: end: 2016
  12. LEVETIRACETAM. [Concomitant]
     Active Substance: LEVETIRACETAM

REACTIONS (10)
  - Breast mass [Unknown]
  - Maternal exposure during pregnancy [Unknown]
  - Neurotoxicity [Unknown]
  - Cognitive disorder [Unknown]
  - Diarrhoea [Unknown]
  - Erythema multiforme [Unknown]
  - Hypokalaemia [Unknown]
  - Blood calcium increased [Unknown]
  - Seizure [Unknown]
  - Breast neoplasm [Unknown]

NARRATIVE: CASE EVENT DATE: 2015
